FAERS Safety Report 13702984 (Version 9)
Quarter: 2018Q3

REPORT INFORMATION
  Report Type: Spontaneous
  Country: US (occurrence: US)
  Receive Date: 20170629
  Receipt Date: 20180918
  Transmission Date: 20181010
  Serious: No
  Sender: FDA-Public Use
  Company Number: US-INCYTE CORPORATION-2017IN004925

PATIENT

DRUGS (11)
  1. TRAVATAN [Concomitant]
     Active Substance: TRAVOPROST
     Indication: PRODUCT USED FOR UNKNOWN INDICATION
     Dosage: UNK
     Route: 047
  2. JAKAFI [Suspect]
     Active Substance: RUXOLITINIB
     Dosage: 20 MG, BID
     Route: 048
     Dates: start: 20170421
  3. NYSTATIN. [Concomitant]
     Active Substance: NYSTATIN
     Indication: PRODUCT USED FOR UNKNOWN INDICATION
     Dosage: UNK
     Route: 065
  4. JAKAFI [Suspect]
     Active Substance: RUXOLITINIB
     Dosage: 20 MG, BID
     Route: 048
     Dates: start: 20170919
  5. LEVOTHYROXINE. [Concomitant]
     Active Substance: LEVOTHYROXINE
     Indication: PRODUCT USED FOR UNKNOWN INDICATION
     Dosage: UNK
     Route: 065
  6. LOSARTAN POTASSIUM. [Concomitant]
     Active Substance: LOSARTAN POTASSIUM
     Indication: PRODUCT USED FOR UNKNOWN INDICATION
     Dosage: UNK
     Route: 065
  7. JAKAFI [Suspect]
     Active Substance: RUXOLITINIB
     Indication: MYELOFIBROSIS
     Dosage: 15 MG, BID
     Route: 048
     Dates: start: 20170620, end: 20170702
  8. JAKAFI [Suspect]
     Active Substance: RUXOLITINIB
     Dosage: 10 MG, BID
     Route: 048
     Dates: start: 20170703, end: 20170710
  9. ASPIRIN                            /00002701/ [Concomitant]
     Active Substance: ASPIRIN
     Indication: PRODUCT USED FOR UNKNOWN INDICATION
     Dosage: UNK
     Route: 065
  10. JAKAFI [Suspect]
     Active Substance: RUXOLITINIB
     Indication: POLYCYTHAEMIA VERA
     Dosage: 10 MG, BID
     Route: 048
     Dates: start: 20170419, end: 20170619
  11. JAKAFI [Suspect]
     Active Substance: RUXOLITINIB
     Dosage: 15 MG, BID
     Route: 048
     Dates: start: 20170711, end: 20170918

REACTIONS (27)
  - Tinea infection [Unknown]
  - White blood cell count abnormal [Recovering/Resolving]
  - Abdominal pain [Unknown]
  - Body tinea [Unknown]
  - Night sweats [Recovering/Resolving]
  - Nausea [Unknown]
  - Onychomycosis [Unknown]
  - Drug ineffective [Unknown]
  - Red blood cell count abnormal [Unknown]
  - Red blood cell count increased [Unknown]
  - Platelet count abnormal [Recovering/Resolving]
  - Blood count abnormal [Recovering/Resolving]
  - Rash [Unknown]
  - Red cell distribution width increased [Recovering/Resolving]
  - Hyperhidrosis [Unknown]
  - Drug dose omission [Unknown]
  - Fatigue [Unknown]
  - Pain [Unknown]
  - Lymphocyte morphology abnormal [Recovering/Resolving]
  - Energy increased [Unknown]
  - Haematocrit increased [Recovered/Resolved]
  - Vision blurred [Unknown]
  - Pruritus [Recovering/Resolving]
  - Platelet count increased [Recovering/Resolving]
  - Chest discomfort [Recovered/Resolved]
  - Skin burning sensation [Unknown]
  - Splenomegaly [Recovering/Resolving]

NARRATIVE: CASE EVENT DATE: 201706
